FAERS Safety Report 4311716-X (Version None)
Quarter: 2004Q1

REPORT INFORMATION
  Report Type: 
  Country: None (occurrence: None)
  Receive Date: 20040302
  Receipt Date: 20040116
  Transmission Date: 20041129
  Serious: No
  Sender: FDA-Public Use
  Company Number: 200326472BWH

PATIENT
  Age: 75 Year
  Sex: Male

DRUGS (11)
  1. LEVITRA [Suspect]
     Indication: ERECTILE DYSFUNCTION
     Dosage: 10 MG, TOTAL DAILY, ORAL
     Route: 048
     Dates: start: 20031016
  2. GLYBURIDE [Concomitant]
  3. NIASPAN [Concomitant]
  4. METFORMIN HCL [Concomitant]
  5. TUSSIONEX ^PENNWALT^ [Concomitant]
  6. LISINOPRIL [Concomitant]
  7. ASPIRIN [Concomitant]
  8. NEXIUM [Concomitant]
  9. FEXOFENADINE HCL [Concomitant]
  10. EYE DROPS [Concomitant]
  11. VIAGRA [Concomitant]

REACTIONS (2)
  - DYSPEPSIA [None]
  - ERECTILE DYSFUNCTION [None]
